FAERS Safety Report 18350230 (Version 41)
Quarter: 2025Q1

REPORT INFORMATION
  Report Type: Report from Study
  Country: US (occurrence: US)
  Receive Date: 20201006
  Receipt Date: 20250311
  Transmission Date: 20250409
  Serious: Yes (Hospitalization, Other)
  Sender: TAKEDA
  Company Number: US-SHIRE-US202031800

PATIENT
  Sex: Female
  Weight: 116 kg

DRUGS (37)
  1. HUMAN IMMUNOGLOBULIN G [Suspect]
     Active Substance: HUMAN IMMUNOGLOBULIN G
     Indication: Immunodeficiency common variable
     Dosage: 50 GRAM, Q4WEEKS
     Dates: start: 19990713
  2. HUMAN IMMUNOGLOBULIN G [Suspect]
     Active Substance: HUMAN IMMUNOGLOBULIN G
     Indication: Hypogammaglobulinaemia
     Dosage: 50 GRAM, Q4WEEKS
     Dates: start: 19991008
  3. HUMAN IMMUNOGLOBULIN G [Suspect]
     Active Substance: HUMAN IMMUNOGLOBULIN G
     Dosage: 50 GRAM, Q4WEEKS
     Dates: start: 20060919
  4. HUMAN IMMUNOGLOBULIN G [Suspect]
     Active Substance: HUMAN IMMUNOGLOBULIN G
     Dosage: 55 GRAM, Q4WEEKS
  5. HUMAN IMMUNOGLOBULIN G [Suspect]
     Active Substance: HUMAN IMMUNOGLOBULIN G
     Dosage: 50 GRAM, Q4WEEKS
     Dates: start: 20131128
  6. HUMAN IMMUNOGLOBULIN G [Suspect]
     Active Substance: HUMAN IMMUNOGLOBULIN G
     Dosage: 55 GRAM, Q4WEEKS
  7. ONDANSETRON HYDROCHLORIDE [Concomitant]
     Active Substance: ONDANSETRON HYDROCHLORIDE
  8. SODIUM CHLORIDE [Concomitant]
     Active Substance: SODIUM CHLORIDE
  9. EPINEPHRINE [Concomitant]
     Active Substance: EPINEPHRINE
  10. NYSTATIN [Concomitant]
     Active Substance: NYSTATIN
  11. BREO ELLIPTA [Concomitant]
     Active Substance: FLUTICASONE FUROATE\VILANTEROL TRIFENATATE
  12. COMPAZINE [Concomitant]
     Active Substance: PROCHLORPERAZINE MALEATE
  13. ZYRTEC [Concomitant]
     Active Substance: CETIRIZINE HYDROCHLORIDE
  14. DENAVIR [Concomitant]
     Active Substance: PENCICLOVIR
  15. OLMESARTAN MEDOXOMIL [Concomitant]
     Active Substance: OLMESARTAN MEDOXOMIL
  16. AMLODIPINE [Concomitant]
     Active Substance: AMLODIPINE BESYLATE
  17. PERCOCET [Concomitant]
     Active Substance: ACETAMINOPHEN\OXYCODONE HYDROCHLORIDE
  18. TYLENOL EXTRA STRENGTH [Concomitant]
     Active Substance: ACETAMINOPHEN
  19. MUCINEX [Concomitant]
     Active Substance: GUAIFENESIN
  20. ALPRAZOLAM [Concomitant]
     Active Substance: ALPRAZOLAM
  21. CYCLOBENZAPRINE [Concomitant]
     Active Substance: CYCLOBENZAPRINE
  22. PROAIR HFA [Concomitant]
     Active Substance: ALBUTEROL SULFATE
  23. NORVASC [Concomitant]
     Active Substance: AMLODIPINE BESYLATE
  24. SODIUM CHLORIDE [Concomitant]
     Active Substance: SODIUM CHLORIDE
  25. ZOLOFT [Concomitant]
     Active Substance: SERTRALINE HYDROCHLORIDE
  26. BENADRYL [Concomitant]
     Active Substance: DIPHENHYDRAMINE HYDROCHLORIDE
  27. LIDOCAINE [Concomitant]
     Active Substance: LIDOCAINE
  28. BYSTOLIC [Concomitant]
     Active Substance: NEBIVOLOL HYDROCHLORIDE
  29. LASIX [Concomitant]
     Active Substance: FUROSEMIDE
  30. ALBUTEROL SULFATE [Concomitant]
     Active Substance: ALBUTEROL SULFATE
  31. FLUTICASONE PROPIONATE [Concomitant]
     Active Substance: FLUTICASONE PROPIONATE
  32. DULERA [Concomitant]
     Active Substance: FORMOTEROL FUMARATE DIHYDRATE\MOMETASONE FUROATE
  33. FUROSEMIDE [Concomitant]
     Active Substance: FUROSEMIDE
  34. Amlodipine besylate;Benazepril [Concomitant]
  35. NALOXONE [Concomitant]
     Active Substance: NALOXONE
  36. AMLODIPINE BESYLATE\HYDROCHLOROTHIAZIDE\OLMESARTAN MEDOXOMIL [Concomitant]
     Active Substance: AMLODIPINE BESYLATE\HYDROCHLOROTHIAZIDE\OLMESARTAN MEDOXOMIL
  37. NALOXONE HCL [Concomitant]
     Active Substance: NALOXONE HYDROCHLORIDE

REACTIONS (33)
  - Nephrolithiasis [Recovering/Resolving]
  - Pyelonephritis [Unknown]
  - Respiratory tract infection [Recovered/Resolved]
  - Infection [Recovered/Resolved]
  - Impaired healing [Not Recovered/Not Resolved]
  - Immune system disorder [Unknown]
  - Viral infection [Unknown]
  - Illness [Unknown]
  - Urinary tract infection [Unknown]
  - Fungal infection [Unknown]
  - Respiratory disorder [Unknown]
  - Productive cough [Recovered/Resolved]
  - Foot fracture [Not Recovered/Not Resolved]
  - Tenderness [Recovered/Resolved]
  - Bronchial disorder [Recovered/Resolved]
  - Fall [Unknown]
  - Ligament sprain [Unknown]
  - Fatigue [Recovering/Resolving]
  - Sinusitis [Recovered/Resolved]
  - Somnolence [Unknown]
  - Stomatitis [Unknown]
  - Nasal congestion [Unknown]
  - Lethargy [Unknown]
  - Anaemia [Recovering/Resolving]
  - Pain [Recovering/Resolving]
  - Influenza like illness [Unknown]
  - Hypotension [Recovering/Resolving]
  - Hypertension [Unknown]
  - Chills [Recovered/Resolved]
  - Pyrexia [Recovered/Resolved]
  - Infusion site pain [Unknown]
  - Diarrhoea [Recovering/Resolving]
  - Headache [Recovered/Resolved]
